FAERS Safety Report 16766204 (Version 1)
Quarter: 2019Q3

REPORT INFORMATION
  Report Type: Spontaneous
  Country: CA (occurrence: CA)
  Receive Date: 20190903
  Receipt Date: 20190903
  Transmission Date: 20191005
  Serious: Yes (Other)
  Sender: FDA-Public Use
  Company Number: CA-PFIZER INC-2019372111

PATIENT
  Sex: Female
  Weight: 70 kg

DRUGS (17)
  1. ASACOL [Concomitant]
     Active Substance: MESALAMINE
     Dosage: 4.8 G, DAILY
  2. IRON [Concomitant]
     Active Substance: IRON
     Dosage: UNK
  3. IMURAN [Concomitant]
     Active Substance: AZATHIOPRINE
     Dosage: 150 MG, UNK
  4. LIPITOR [Suspect]
     Active Substance: ATORVASTATIN CALCIUM
     Dosage: UNK
  5. PREDNISONE. [Concomitant]
     Active Substance: PREDNISONE
     Dosage: 40 MG, DAILY
     Route: 054
  6. JANUMET [Concomitant]
     Active Substance: METFORMIN HYDROCHLORIDE\SITAGLIPTIN PHOSPHATE
     Dosage: UNK
  7. SYNTHROID [Concomitant]
     Active Substance: LEVOTHYROXINE SODIUM
     Dosage: UNK
  8. REMICADE [Concomitant]
     Active Substance: INFLIXIMAB
     Indication: COLITIS ULCERATIVE
     Dosage: 500 MG, UNK
     Route: 042
     Dates: start: 201908, end: 201908
  9. SALOFALK [MESALAZINE] [Concomitant]
     Active Substance: MESALAMINE
     Dosage: 4 G, (HS) (AT BED TIME)
  10. GLICLAZIDE [Concomitant]
     Active Substance: GLICLAZIDE
     Dosage: UNK
  11. TELMISARTAN. [Concomitant]
     Active Substance: TELMISARTAN
     Dosage: UNK
  12. LASIX [Concomitant]
     Active Substance: FUROSEMIDE
     Dosage: UNK
  13. BISOPROLOL [Concomitant]
     Active Substance: BISOPROLOL
     Dosage: UNK
  14. FORXIGA [Concomitant]
     Active Substance: DAPAGLIFLOZIN
     Dosage: UNK
  15. ASPIRIN [ACETYLSALICYLIC ACID] [Concomitant]
     Active Substance: ASPIRIN
     Dosage: UNK
  16. REMICADE [Concomitant]
     Active Substance: INFLIXIMAB
     Indication: PYODERMA GANGRENOSUM
  17. SOLU-MEDROL [Concomitant]
     Active Substance: METHYLPREDNISOLONE SODIUM SUCCINATE
     Dosage: 20 MG, UNK
     Route: 042
     Dates: start: 201908, end: 201908

REACTIONS (9)
  - Dyspepsia [Unknown]
  - Pyoderma gangrenosum [Unknown]
  - Erythema nodosum [Unknown]
  - Blood albumin decreased [Unknown]
  - Diarrhoea haemorrhagic [Unknown]
  - Pain in extremity [Unknown]
  - Abdominal pain [Unknown]
  - Asthenia [Unknown]
  - Fatigue [Unknown]
